FAERS Safety Report 6295156-2 (Version None)
Quarter: 2009Q3

REPORT INFORMATION
  Report Type: 
  Country: None (occurrence: None)
  Receive Date: 20090803
  Receipt Date: 20090803
  Transmission Date: 20100115
  Serious: Yes (Other)
  Sender: FDA-Public Use
  Company Number: US-PFIZER INC-2009228241

PATIENT
  Sex: Female
  Weight: 78.017 kg

DRUGS (8)
  1. DEPO-MEDROL [Suspect]
     Indication: ALLERGY TEST
     Dosage: 1 ML, UNK
     Route: 023
     Dates: start: 20090126, end: 20090514
  2. LIDOCAINE HYDROCHLORIDE [Concomitant]
  3. SOLU-MEDROL [Concomitant]
  4. BENICAR [Concomitant]
  5. LIPITOR [Concomitant]
  6. NADOLOL [Concomitant]
  7. CORTICOSTEROIDS [Concomitant]
  8. OXYCODONE [Concomitant]

REACTIONS (7)
  - ANAPHYLACTIC REACTION [None]
  - CHEST DISCOMFORT [None]
  - FLUSHING [None]
  - MASTOCYTOSIS [None]
  - PRURITUS [None]
  - THROAT TIGHTNESS [None]
  - TRYPTASE INCREASED [None]
